FAERS Safety Report 9389571 (Version 2)
Quarter: 2013Q3

REPORT INFORMATION
  Report Type: Spontaneous
  Country: US (occurrence: US)
  Receive Date: 20130708
  Receipt Date: 20130807
  Transmission Date: 20140515
  Serious: No
  Sender: FDA-Public Use
  Company Number: US-AMGEN-USASP2013045702

PATIENT
  Age: 42 Year
  Sex: Male
  Weight: 81.63 kg

DRUGS (3)
  1. ENBREL [Suspect]
     Indication: PSORIASIS
     Dosage: 50 MG, BIW
     Route: 058
     Dates: start: 201303, end: 201306
  2. ENBREL [Suspect]
     Indication: PSORIATIC ARTHROPATHY
  3. VALTREX [Concomitant]
     Indication: GENITAL HERPES
     Dosage: UNK

REACTIONS (2)
  - Oral herpes [Unknown]
  - Herpes simplex [Recovered/Resolved]
